FAERS Safety Report 9096668 (Version 1)
Quarter: 2013Q1

REPORT INFORMATION
  Report Type: Spontaneous
  Country: GB (occurrence: None)
  Receive Date: 20130125
  Receipt Date: 20130125
  Transmission Date: 20140127
  Serious: Yes (Other)
  Sender: FDA-Public Use
  Company Number: GB-MACLEODS PHARMA-000055

PATIENT
  Age: 89 Year
  Sex: Female

DRUGS (7)
  1. DONEPEZIL (DONEPEZIL) [Suspect]
     Indication: DEMENTIA ALZHEIMER^S TYPE
     Dates: start: 20120713, end: 20120904
  2. LOSARTAN (LOSARTAN) [Concomitant]
  3. MOXONIDINE (MOXONIDINE) [Concomitant]
  4. QVAR (QVAR) [Concomitant]
  5. RISEDRONATE SODIUM (RISEDRONATE SODIUM) [Concomitant]
  6. ASPIRIN (ASPIRIN) [Concomitant]
  7. FUROSEMIDE (FUROSEMIDE) [Concomitant]

REACTIONS (5)
  - Hypomania [None]
  - Energy increased [None]
  - Delusion [None]
  - Inappropriate affect [None]
  - Insomnia [None]
